FAERS Safety Report 11155357 (Version 1)
Quarter: 2015Q2

REPORT INFORMATION
  Report Type: Spontaneous
  Country: GB (occurrence: None)
  Receive Date: 20150529
  Receipt Date: 20150529
  Transmission Date: 20150821
  Serious: Yes (Hospitalization, Other)
  Sender: FDA-Public Use
  Company Number: GB-ZYDUS-008166

PATIENT
  Age: 70 Year
  Sex: Female

DRUGS (9)
  1. ALENDRONIC ACID (ALENDRONIC ACID) [Concomitant]
     Active Substance: ALENDRONIC ACID
  2. LETROZOLE (LETROZOLE) [Concomitant]
     Active Substance: LETROZOLE
  3. OMEPRAZOLE (OMEPRAZOLE) [Concomitant]
     Active Substance: OMEPRAZOLE
  4. CO-AMOXICLAV (CO-AMOXICLAV) [Concomitant]
  5. OLANZAPINE (OLANZAPINE) [Suspect]
     Active Substance: OLANZAPINE
     Indication: MENTAL DISORDER
     Route: 048
     Dates: end: 20141022
  6. ADCAL D3 (ADCAL D3) [Concomitant]
  7. NAPROXEN (NAPROXEN) [Concomitant]
     Active Substance: NAPROXEN
  8. SIMVASTATIN (SIMVASTATIN) [Suspect]
     Active Substance: SIMVASTATIN
     Indication: HYPERCHOLESTEROLAEMIA
     Route: 048
     Dates: end: 20141023
  9. COCODAMOL [Concomitant]
     Active Substance: ACETAMINOPHEN\CODEINE PHOSPHATE

REACTIONS (6)
  - Extrapyramidal disorder [None]
  - Pneumonia [None]
  - Acute kidney injury [None]
  - Rhabdomyolysis [None]
  - Fall [None]
  - Sepsis [None]
